FAERS Safety Report 7735082-2 (Version None)
Quarter: 2011Q3

REPORT INFORMATION
  Report Type: 
  Country: None (occurrence: None)
  Receive Date: 20110817
  Receipt Date: 20110210
  Transmission Date: 20111222
  Serious: Yes (Other)
  Sender: FDA-Public Use
  Company Number: 20108626

PATIENT
  Sex: Male

DRUGS (1)
  1. LIORESAL [Suspect]
     Indication: MUSCLE SPASTICITY
     Dosage: MCG, DAILY, INTRATHECAL
     Route: 037

REACTIONS (6)
  - DEVICE COMPUTER ISSUE [None]
  - MEDICAL DEVICE COMPLICATION [None]
  - HYPERTONIA [None]
  - THERAPY REGIMEN CHANGED [None]
  - MUSCLE TIGHTNESS [None]
  - URINARY RETENTION [None]
